FAERS Safety Report 5983529-4 (Version None)
Quarter: 2008Q4

REPORT INFORMATION
  Report Type: 
  Country: None (occurrence: None)
  Receive Date: 20081205
  Receipt Date: 20081205
  Transmission Date: 20090506
  Serious: No
  Sender: FDA-Public Use
  Company Number: None

PATIENT

DRUGS (1)
  1. ISOSORBIDE MONONITRATE [Suspect]

REACTIONS (4)
  - ASTHENIA [None]
  - HEADACHE [None]
  - MALAISE [None]
  - PAIN [None]
